FAERS Safety Report 25006590 (Version 1)
Quarter: 2025Q1

REPORT INFORMATION
  Report Type: Other
  Country: TN (occurrence: TN)
  Receive Date: 20250225
  Receipt Date: 20250225
  Transmission Date: 20250409
  Serious: Yes (Other)
  Sender: INNOGENIX, LLC
  Company Number: TN-Innogenix, LLC-2171669

PATIENT
  Age: 22 Year
  Sex: Female

DRUGS (3)
  1. HALOPERIDOL [Suspect]
     Active Substance: HALOPERIDOL
     Indication: Schizophrenia
  2. CHLORPROMAZINE [Suspect]
     Active Substance: CHLORPROMAZINE
  3. DIAZEPAM [Concomitant]
     Active Substance: DIAZEPAM

REACTIONS (2)
  - Hepatic cytolysis [Recovered/Resolved]
  - Generalised oedema [Recovered/Resolved]
